FAERS Safety Report 9672063 (Version 2)
Quarter: 2013Q4

REPORT INFORMATION
  Report Type: Spontaneous
  Country: US (occurrence: US)
  Receive Date: 20131106
  Receipt Date: 20131119
  Transmission Date: 20140711
  Serious: Yes (Other)
  Sender: FDA-Public Use
  Company Number: US-CELGENEUS-163-20785-13106320

PATIENT
  Sex: Female

DRUGS (3)
  1. THALOMID [Suspect]
     Indication: LEPROMATOUS LEPROSY
     Dosage: 200 MILLIGRAM
     Route: 048
     Dates: start: 201305
  2. THALOMID [Suspect]
     Dosage: 100 - 300MG
     Route: 048
     Dates: start: 201305
  3. THALOMID [Suspect]
     Dosage: 200 MILLIGRAM
     Route: 048
     Dates: start: 201310

REACTIONS (2)
  - Conversion disorder [Unknown]
  - Lepromatous leprosy [Unknown]
